FAERS Safety Report 5005507-4 (Version None)
Quarter: 2006Q2

REPORT INFORMATION
  Report Type: 
  Country: None (occurrence: None)
  Receive Date: 20060518
  Receipt Date: 20050623
  Transmission Date: 20061013
  Serious: Yes (Other)
  Sender: FDA-Public Use
  Company Number: GB-ROCHE-408659

PATIENT
  Age: 20 Year
  Sex: Female
  Weight: 57 kg

DRUGS (2)
  1. ROACCUTANE [Suspect]
     Indication: ACNE
     Dosage: REPORTED AS 40 MG
     Route: 048
     Dates: start: 20050115, end: 20050622
  2. ROACCUTANE [Suspect]
     Dosage: REPORTED AS 40 MG
     Route: 048
     Dates: start: 20030815, end: 20031215

REACTIONS (3)
  - ABORTION INDUCED [None]
  - DRUG EXPOSURE DURING PREGNANCY [None]
  - PREGNANCY [None]
